FAERS Safety Report 5158473-5 (Version None)
Quarter: 2006Q4

REPORT INFORMATION
  Report Type: 
  Country: None (occurrence: None)
  Receive Date: 20061128
  Receipt Date: 20061114
  Transmission Date: 20070319
  Serious: Yes (Hospitalization)
  Sender: FDA-Public Use
  Company Number: 2006SE06232

PATIENT
  Age: 24327 Day
  Sex: Male

DRUGS (2)
  1. QUETIAPINE FUMARATE [Suspect]
     Indication: BIPOLAR I DISORDER
     Route: 048
  2. STUDY PROCEDURE [Suspect]
     Indication: BIPOLAR I DISORDER

REACTIONS (1)
  - GASTRIC ULCER [None]
